FAERS Safety Report 6119729-2 (Version None)
Quarter: 2009Q1

REPORT INFORMATION
  Report Type: 
  Country: None (occurrence: None)
  Receive Date: 20090311
  Receipt Date: 20090303
  Transmission Date: 20090719
  Serious: Yes (Disabling)
  Sender: FDA-Public Use
  Company Number: 168069ISR

PATIENT
  Age: 70 Year
  Sex: Female

DRUGS (6)
  1. WARFARIN SODIUM [Suspect]
     Indication: CEREBROVASCULAR ACCIDENT PROPHYLAXIS
     Dosage: 5 MG (5 MG, 1 IN 1 D) ORAL
     Route: 048
     Dates: start: 20071120, end: 20080131
  2. WARFARIN SODIUM [Suspect]
     Indication: THROMBOSIS PROPHYLAXIS
     Dosage: 5 MG (5 MG, 1 IN 1 D) ORAL
     Route: 048
     Dates: start: 20071120, end: 20080131
  3. AMIODARONE HCL [Concomitant]
  4. ENALAPRIL [Concomitant]
  5. BECLOMETASONE [Concomitant]
  6. SALBUTAMOL [Concomitant]

REACTIONS (2)
  - OVARIAN CANCER METASTATIC [None]
  - POSTMENOPAUSAL HAEMORRHAGE [None]
